FAERS Safety Report 5293043-X (Version None)
Quarter: 2007Q2

REPORT INFORMATION
  Report Type: 
  Country: None (occurrence: None)
  Receive Date: 20070404
  Receipt Date: 20070323
  Transmission Date: 20071010
  Serious: Yes (Hospitalization)
  Sender: FDA-Public Use
  Company Number: TCI2007A01518

PATIENT
  Age: 83 Year
  Sex: Male

DRUGS (5)
  1. ACTOS [Suspect]
     Indication: DIABETES MELLITUS
     Dosage: SEE IMAGE
     Route: 048
     Dates: start: 20060801, end: 20060901
  2. ACTOS [Suspect]
     Indication: DIABETES MELLITUS
     Dosage: SEE IMAGE
     Route: 048
     Dates: start: 20060901
  3. AMARYL [Concomitant]
  4. LASIX [Concomitant]
  5. ALACTONE-A (SPIRONOLACTONE) [Concomitant]

REACTIONS (2)
  - ASCITES [None]
  - PULMONARY OEDEMA [None]
